FAERS Safety Report 24301659 (Version 1)
Quarter: 2024Q3

REPORT INFORMATION
  Report Type: Report from Study
  Country: IN (occurrence: IN)
  Receive Date: 20240910
  Receipt Date: 20240910
  Transmission Date: 20241016
  Serious: Yes (Hospitalization)
  Sender: ROCHE
  Company Number: IN-002147023-NVSC2024IN179633

PATIENT
  Age: 65 Year

DRUGS (1)
  1. RANIBIZUMAB [Suspect]
     Active Substance: RANIBIZUMAB
     Indication: Renal vein occlusion
     Dosage: UNK
     Route: 050
     Dates: start: 20240529

REACTIONS (1)
  - Macular oedema [Unknown]
